FAERS Safety Report 10445714 (Version 2)
Quarter: 2014Q3

REPORT INFORMATION
  Report Type: Spontaneous
  Country: DE (occurrence: DE)
  Receive Date: 20140910
  Receipt Date: 20140910
  Transmission Date: 20150326
  Serious: Yes (Hospitalization, Other)
  Sender: FDA-Public Use
  Company Number: DE-BAYER-2014-070117

PATIENT
  Age: 56 Year
  Sex: Female
  Weight: 51 kg

DRUGS (1)
  1. CIPROBAY [Suspect]
     Active Substance: CIPROFLOXACIN
     Indication: CAMPYLOBACTER INFECTION
     Dosage: 500 MG, BID
     Dates: start: 20140227, end: 20140317

REACTIONS (9)
  - Headache [Recovered/Resolved]
  - Hyperhidrosis [Recovered/Resolved]
  - Eye irritation [Recovered/Resolved]
  - Dry mouth [None]
  - Fluid retention [Recovered/Resolved]
  - Pollakiuria [Recovered/Resolved]
  - Depression [Recovered/Resolved]
  - Tendonitis [None]
  - Abdominal discomfort [Recovered/Resolved]

NARRATIVE: CASE EVENT DATE: 20140317
